FAERS Safety Report 6432308-2 (Version None)
Quarter: 2009Q4

REPORT INFORMATION
  Report Type: 
  Country: None (occurrence: None)
  Receive Date: 20091105
  Receipt Date: 20091027
  Transmission Date: 20100525
  Serious: Yes (Hospitalization)
  Sender: FDA-Public Use
  Company Number: TPA2009A03444

PATIENT

DRUGS (4)
  1. ULORIC [Suspect]
     Indication: GOUT
     Dosage: 40 MG, PER ORAL, 80 MG, PER ORAL
     Route: 046
     Dates: start: 20090801, end: 20090101
  2. ULORIC [Suspect]
     Indication: HYPERURICAEMIA
     Dosage: 40 MG, PER ORAL, 80 MG, PER ORAL
     Route: 046
     Dates: start: 20090801, end: 20090101
  3. ULORIC [Suspect]
     Indication: GOUT
     Dosage: 40 MG, PER ORAL, 80 MG, PER ORAL
     Route: 046
     Dates: start: 20090101
  4. ULORIC [Suspect]
     Indication: HYPERURICAEMIA
     Dosage: 40 MG, PER ORAL, 80 MG, PER ORAL
     Route: 046
     Dates: start: 20090101

REACTIONS (1)
  - CARDIAC FAILURE ACUTE [None]
